FAERS Safety Report 20034236 (Version 1)
Quarter: 2021Q4

REPORT INFORMATION
  Report Type: Spontaneous
  Country: GB (occurrence: GB)
  Receive Date: 20211104
  Receipt Date: 20211104
  Transmission Date: 20220303
  Serious: Yes (Disabling, Other)
  Sender: FDA-Public Use
  Company Number: None

PATIENT
  Sex: Female

DRUGS (1)
  1. ALENDRONATE [Suspect]
     Active Substance: ALENDRONATE SODIUM
     Indication: Product used for unknown indication
     Dosage: 70 MILLIGRAM

REACTIONS (10)
  - Mobility decreased [Unknown]
  - Gingivitis [Unknown]
  - Loose tooth [Unknown]
  - Tooth injury [Unknown]
  - Urinary tract infection [Unknown]
  - Blood calcium decreased [Unknown]
  - Fatigue [Unknown]
  - Constipation [Unknown]
  - Nausea [Unknown]
  - Asthenia [Unknown]
